FAERS Safety Report 10469250 (Version 1)
Quarter: 2014Q3

REPORT INFORMATION
  Report Type: Spontaneous
  Country: US (occurrence: None)
  Receive Date: 20140903
  Receipt Date: 20140903
  Transmission Date: 20150326
  Serious: Yes (Hospitalization)
  Sender: FDA-Public Use
  Company Number: 2013-001391

PATIENT
  Age: 45 Year
  Sex: Female

DRUGS (2)
  1. DELZICOL [Suspect]
     Active Substance: MESALAMINE
     Indication: COLITIS ULCERATIVE
     Route: 048
     Dates: start: 20130422
  2. CLONAZEPAM (CLONAZEPAM) [Concomitant]
     Dosage: 4 CAPSULES 3 TIMES A DAY
     Route: 048

REACTIONS (5)
  - Diarrhoea [None]
  - Drug ineffective [None]
  - Colitis ulcerative [None]
  - Haematochezia [None]
  - Pain [None]

NARRATIVE: CASE EVENT DATE: 20130503
